FAERS Safety Report 22367446 (Version 1)
Quarter: 2023Q2

REPORT INFORMATION
  Report Type: Spontaneous
  Country: US (occurrence: None)
  Receive Date: 20230525
  Receipt Date: 20230525
  Transmission Date: 20230721
  Serious: No
  Sender: FDA-Public Use
  Company Number: None

PATIENT
  Age: 74 Year
  Sex: Male
  Weight: 86.18 kg

DRUGS (22)
  1. COPIKTRA [Suspect]
     Active Substance: DUVELISIB
     Indication: Chronic lymphocytic leukaemia refractory
     Dosage: FREQUENCY : TWICE A DAY;?
     Route: 048
     Dates: start: 202304, end: 20230522
  2. ACYCLOVIR [Concomitant]
     Active Substance: ACYCLOVIR
  3. ASPIRIN [Concomitant]
     Active Substance: ASPIRIN
  4. ATORVASTATIN [Concomitant]
  5. CLOPIDOGREL [Concomitant]
  6. FAMOTIDINE [Concomitant]
     Active Substance: FAMOTIDINE
  7. FINASTERIDE [Concomitant]
     Active Substance: FINASTERIDE
  8. FOLIC ACID [Concomitant]
     Active Substance: FOLIC ACID
  9. FUROSEMIDE [Concomitant]
     Active Substance: FUROSEMIDE
  10. IMBRUVICA [Concomitant]
     Active Substance: IBRUTINIB
  11. LENVIMA [Concomitant]
  12. LEVOTHYROXINE [Concomitant]
     Active Substance: LEVOTHYROXINE
  13. LOPERAMIDE [Concomitant]
     Active Substance: LOPERAMIDE
  14. METOPROLOL [Concomitant]
     Active Substance: METOPROLOL
  15. MULTIVITAMIN [Concomitant]
  16. OMEPRAZOLE [Concomitant]
  17. OXYBUTYNIN [Concomitant]
     Active Substance: OXYBUTYNIN
  18. PANTOPRAZOLE [Concomitant]
  19. PREDNISONE [Concomitant]
  20. SERTRALINE [Concomitant]
     Active Substance: SERTRALINE HYDROCHLORIDE
  21. TAMSULOSIN [Concomitant]
  22. VITAMIN B6 [Concomitant]
     Active Substance: PYRIDOXINE HYDROCHLORIDE

REACTIONS (1)
  - Hospice care [None]
